FAERS Safety Report 6593227-4 (Version None)
Quarter: 2010Q1

REPORT INFORMATION
  Report Type: 
  Country: None (occurrence: None)
  Receive Date: 20100222
  Receipt Date: 20100222
  Transmission Date: 20100710
  Serious: Yes (Hospitalization)
  Sender: FDA-Public Use
  Company Number: PHHO2007NO01327

PATIENT
  Sex: Female
  Weight: 45 kg

DRUGS (14)
  1. ZOLEDRONIC ACID [Suspect]
     Indication: OSTEOPOROSIS POSTMENOPAUSAL
     Dosage: 5 MG ONCE A YEAR
     Route: 042
     Dates: start: 20050815
  2. PERSANTINE [Suspect]
     Indication: PROPHYLAXIS
     Dosage: 75 MG, QD
     Route: 048
     Dates: start: 20040101
  3. ENALAPRIL MALEATE [Concomitant]
  4. CALCIUM [Concomitant]
     Indication: OSTEOPOROSIS POSTMENOPAUSAL
     Dosage: UNK, UNK
  5. VITAMIN D [Concomitant]
     Indication: OSTEOPOROSIS POSTMENOPAUSAL
     Dosage: UNK, UNK
  6. CALCIGRAN [Concomitant]
     Indication: OSTEOPOROSIS
     Route: 048
     Dates: start: 20050804, end: 20060815
  7. ALBYL-E [Concomitant]
     Dates: start: 20020507
  8. DUROFERON DURETTER [Concomitant]
     Indication: ANAEMIA
     Dates: start: 20051125, end: 20060625
  9. ANTINEURALGICA [Concomitant]
     Indication: BACK PAIN
     Dates: start: 19900101
  10. COZAAR [Concomitant]
     Indication: HYPERTENSION
     Route: 048
     Dates: start: 19900101
  11. NEXIUM [Concomitant]
     Indication: DYSPEPSIA
     Dosage: 40 MG, QD
     Route: 048
     Dates: start: 20000101, end: 20061024
  12. COSOPT [Concomitant]
     Indication: GLAUCOMA
     Dates: start: 19980101
  13. XALATAN [Concomitant]
     Indication: GLAUCOMA
     Dates: start: 20040101
  14. TIMOSAN [Concomitant]
     Indication: GLAUCOMA
     Dates: start: 19980101, end: 20040101

REACTIONS (6)
  - ANGIODYSPLASIA [None]
  - DIARRHOEA [None]
  - DIVERTICULUM [None]
  - GASTROINTESTINAL HAEMORRHAGE [None]
  - HYPOKALAEMIA [None]
  - WEIGHT DECREASED [None]
